FAERS Safety Report 14272580 (Version 1)
Quarter: 2017Q4

REPORT INFORMATION
  Report Type: Report from Study
  Country: US (occurrence: US)
  Receive Date: 20171212
  Receipt Date: 20171212
  Transmission Date: 20180321
  Serious: Yes (Death, Hospitalization)
  Sender: FDA-Public Use
  Company Number: US-BAYER-2017-217930

PATIENT
  Age: 59 Year
  Sex: Male

DRUGS (1)
  1. NEXAVAR [Suspect]
     Active Substance: SORAFENIB
     Indication: HEPATOCELLULAR CARCINOMA
     Dosage: 200 MG, BID
     Route: 048
     Dates: start: 20171108, end: 20171122

REACTIONS (9)
  - Dyspnoea [None]
  - Death [Fatal]
  - Haemorrhagic diathesis [None]
  - Loss of personal independence in daily activities [None]
  - Thirst [None]
  - Nausea [None]
  - Decreased appetite [None]
  - Social avoidant behaviour [None]
  - Off label use [None]

NARRATIVE: CASE EVENT DATE: 201711
